FAERS Safety Report 14303450 (Version 3)
Quarter: 2018Q1

REPORT INFORMATION
  Report Type: Spontaneous
  Country: DE (occurrence: DE)
  Receive Date: 20171219
  Receipt Date: 20180205
  Transmission Date: 20180509
  Serious: Yes (Hospitalization)
  Sender: FDA-Public Use
  Company Number: DE-OTSUKA-2017_025643

PATIENT
  Age: 24 Year
  Sex: Male

DRUGS (4)
  1. OLANZAPINE. [Concomitant]
     Active Substance: OLANZAPINE
     Indication: PSYCHOTIC DISORDER
     Dosage: UNK
     Route: 065
  2. ABILIFY [Suspect]
     Active Substance: ARIPIPRAZOLE
     Indication: PRODUCT USED FOR UNKNOWN INDICATION
     Dosage: 5MG/DAY START DATE:FOUR WEEKS AFTER THE LAST ARIPIPRAZOLE INJECTION (LAST INJECTION RECEIVED IN SEPT
     Route: 048
     Dates: start: 2017
  3. ABILIFY MAINTENA [Suspect]
     Active Substance: ARIPIPRAZOLE
     Indication: PSYCHOTIC DISORDER
     Dosage: 400 MG, UNK (2 INJECTIONS)
     Route: 030
  4. ABILIFY MAINTENA [Suspect]
     Active Substance: ARIPIPRAZOLE
     Dosage: 400 MG, UNK
     Route: 030
     Dates: end: 20171117

REACTIONS (11)
  - Loss of consciousness [Recovering/Resolving]
  - Prescribed underdose [Unknown]
  - Drug prescribing error [Unknown]
  - Gambling disorder [Recovering/Resolving]
  - Condition aggravated [Unknown]
  - Hypersexuality [Recovering/Resolving]
  - Hospitalisation [Recovered/Resolved]
  - Product use in unapproved indication [Unknown]
  - Penis disorder [Unknown]
  - Therapy cessation [Unknown]
  - Excessive masturbation [Unknown]

NARRATIVE: CASE EVENT DATE: 20171117
